FAERS Safety Report 5405130-3 (Version None)
Quarter: 2007Q3

REPORT INFORMATION
  Report Type: 
  Country: None (occurrence: None)
  Receive Date: 20070803
  Receipt Date: 20070719
  Transmission Date: 20080115
  Serious: Yes (Hospitalization)
  Sender: FDA-Public Use
  Company Number: JP-GENENTECH-243529

PATIENT
  Sex: Male

DRUGS (3)
  1. BEVACIZUMAB [Suspect]
     Indication: COLORECTAL CANCER
     Dosage: UNK, Q3W
     Route: 042
     Dates: start: 20060721, end: 20070516
  2. CAPECITABINE [Suspect]
     Indication: COLORECTAL CANCER
     Dosage: 1000 MG, UNK
     Route: 048
     Dates: start: 20060721, end: 20070516
  3. OXALIPLATIN [Suspect]
     Indication: COLORECTAL CANCER
     Dosage: UNK, Q3W
     Route: 042
     Dates: start: 20060721, end: 20070516

REACTIONS (8)
  - BLOOD BILIRUBIN INCREASED [None]
  - BLOOD PRESSURE DECREASED [None]
  - ENTERITIS INFECTIOUS [None]
  - HAEMOGLOBIN DECREASED [None]
  - PERITONITIS [None]
  - PLATELET COUNT DECREASED [None]
  - RED BLOOD CELL COUNT DECREASED [None]
  - WEIGHT INCREASED [None]
